FAERS Safety Report 6625718-1 (Version None)
Quarter: 2010Q1

REPORT INFORMATION
  Report Type: 
  Country: None (occurrence: None)
  Receive Date: 20100310
  Receipt Date: 20100304
  Transmission Date: 20100710
  Serious: Yes (Death, Hospitalization)
  Sender: FDA-Public Use
  Company Number: US-GILEAD-2010-0027298

PATIENT
  Sex: Female

DRUGS (4)
  1. LETAIRIS [Suspect]
     Indication: PULMONARY ARTERIAL HYPERTENSION
     Route: 048
     Dates: start: 20100111, end: 20100301
  2. METOPROLOL [Concomitant]
  3. ONDANSETRON [Concomitant]
  4. FERROUS SULFATE TAB [Concomitant]

REACTIONS (1)
  - GENERALISED OEDEMA [None]
